FAERS Safety Report 9012003 (Version 1)
Quarter: 2012Q4

REPORT INFORMATION
  Report Type: 
  Country: IN (occurrence: None)
  Receive Date: 20121228
  Receipt Date: 20121228
  Transmission Date: 20130627
  Serious: Yes (Hospitalization)
  Sender: FDA-Public Use
  Company Number: PNIS20120040

PATIENT
  Age: 71 Year
  Sex: Male

DRUGS (3)
  1. PREDNISOLONE [Suspect]
     Dosage: 1 in 1 D
     Dates: start: 1995
  2. CYCLOSPORINE [Suspect]
     Dates: start: 1995
  3. AZATHIOPRIM [Suspect]
     Dosage: 1 in 1 D
     Dates: start: 1995

REACTIONS (2)
  - Cerebral infarction [None]
  - Cardiac myxoma [None]
